FAERS Safety Report 10660001 (Version 6)
Quarter: 2015Q2

REPORT INFORMATION
  Report Type: Report from Study
  Country: CN (occurrence: CN)
  Receive Date: 20141217
  Receipt Date: 20150430
  Transmission Date: 20150821
  Serious: Yes (Hospitalization, Other)
  Sender: FDA-Public Use
  Company Number: CN-GLAXOSMITHKLINE INC.-CN2014026600

PATIENT
  Age: 76 Year
  Sex: Male
  Weight: 63 kg

DRUGS (9)
  1. DEXTROMETHORPHAN HYDROBROMIDE. [Concomitant]
     Active Substance: DEXTROMETHORPHAN HYDROBROMIDE
     Indication: ANALGESIC THERAPY
     Dosage: 1 TAB, ONE
     Route: 048
     Dates: start: 20140918, end: 20140918
  2. CLOPIDOGREL HYDROGEN SULFATE [Concomitant]
     Active Substance: CLOPIDOGREL BISULFATE
     Indication: CORONARY ARTERY DISEASE
     Dosage: 75 MG, OD
     Route: 048
     Dates: start: 20140109
  3. VITAMIN C [Concomitant]
     Active Substance: ASCORBIC ACID
     Indication: ANTIEMETIC SUPPORTIVE CARE
     Dosage: 0.1 G, ONE
     Route: 042
     Dates: start: 20140918, end: 20140918
  4. TAMSULOSIN HYDROCHLORIDE. [Concomitant]
     Active Substance: TAMSULOSIN HYDROCHLORIDE
     Indication: URINARY TRACT DISORDER
     Dosage: 0.2 MG, DAILY
     Dates: start: 20140921, end: 20140921
  5. FLUTICASONE FUROATE [Suspect]
     Active Substance: FLUTICASONE FUROATE
     Indication: CHRONIC OBSTRUCTIVE PULMONARY DISEASE
     Dosage: UNK
     Dates: start: 20131030, end: 20141010
  6. VITAMIN B6 [Concomitant]
     Active Substance: PYRIDOXINE HYDROCHLORIDE
     Indication: ANTIEMETIC SUPPORTIVE CARE
     Dosage: 0.1 G, ONE
     Route: 042
     Dates: start: 20140918, end: 20140918
  7. ASPIRIN. [Concomitant]
     Active Substance: ASPIRIN
     Indication: ANTICOAGULANT THERAPY
     Dosage: 0.1 G, OD
     Route: 048
     Dates: start: 20131030
  8. LIPITOR [Concomitant]
     Active Substance: ATORVASTATIN CALCIUM
     Indication: HYPERLIPIDAEMIA
     Dosage: 20 MG, OD
     Route: 048
     Dates: start: 20131030
  9. LACTULOSE. [Concomitant]
     Active Substance: LACTULOSE
     Indication: SUPPLEMENTATION THERAPY
     Dosage: 30 ML, OD
     Route: 048
     Dates: start: 20140921, end: 20140921

REACTIONS (1)
  - Urinary retention [Recovered/Resolved]

NARRATIVE: CASE EVENT DATE: 20141005
